FAERS Safety Report 7005719-4 (Version None)
Quarter: 2010Q3

REPORT INFORMATION
  Report Type: 
  Country: None (occurrence: None)
  Receive Date: 20100921
  Receipt Date: 20100913
  Transmission Date: 20110219
  Serious: Yes (Hospitalization, Disabling, Other)
  Sender: FDA-Public Use
  Company Number: US-MERCK-1006USA02771

PATIENT
  Age: 51 Year
  Sex: Female
  Weight: 83 kg

DRUGS (6)
  1. FOSAMAX [Suspect]
     Indication: OSTEOPOROSIS
     Route: 048
     Dates: start: 20030611, end: 20050101
  2. FOSAMAX [Suspect]
     Route: 048
     Dates: start: 19970707, end: 20030611
  3. FOSAMAX [Suspect]
     Indication: HIP FRACTURE
     Route: 048
     Dates: start: 20030611, end: 20050101
  4. FOSAMAX [Suspect]
     Route: 048
     Dates: start: 19970707, end: 20030611
  5. ALENDRONATE SODIUM [Suspect]
     Indication: OSTEOPOROSIS
     Route: 048
     Dates: start: 20080101, end: 20090301
  6. FOSAMAX PLUS D [Suspect]
     Indication: OSTEOPOROSIS
     Route: 048
     Dates: start: 20050101, end: 20080101

REACTIONS (44)
  - ALOPECIA [None]
  - ANTINUCLEAR ANTIBODY POSITIVE [None]
  - ARTHRALGIA [None]
  - ARTHRITIS [None]
  - ARTHROPATHY [None]
  - BACK DISORDER [None]
  - BACK PAIN [None]
  - BLOOD CHOLESTEROL INCREASED [None]
  - BREAST DISORDER [None]
  - CHEST DISCOMFORT [None]
  - CHEST PAIN [None]
  - COCCYDYNIA [None]
  - DEPRESSION [None]
  - DYSPNOEA [None]
  - ESCHERICHIA INFECTION [None]
  - FALL [None]
  - FATIGUE [None]
  - FEMUR FRACTURE [None]
  - FOOT FRACTURE [None]
  - GASTROOESOPHAGEAL REFLUX DISEASE [None]
  - HAEMATOMA EVACUATION [None]
  - HAND FRACTURE [None]
  - HYPERTENSION [None]
  - HYPOAESTHESIA [None]
  - IMPAIRED HEALING [None]
  - INTERVERTEBRAL DISC PROTRUSION [None]
  - JOINT INJURY [None]
  - LOW TURNOVER OSTEOPATHY [None]
  - LUMBAR RADICULOPATHY [None]
  - MASS [None]
  - MYOPIA [None]
  - OSTEOPOROSIS [None]
  - PAIN IN EXTREMITY [None]
  - PERIODIC LIMB MOVEMENT DISORDER [None]
  - RESPIRATORY TRACT CONGESTION [None]
  - SINUS CONGESTION [None]
  - SINUSITIS [None]
  - SLEEP APNOEA SYNDROME [None]
  - STRESS [None]
  - STRESS FRACTURE [None]
  - SYSTEMIC LUPUS ERYTHEMATOSUS [None]
  - TINEA PEDIS [None]
  - WEIGHT INCREASED [None]
  - WOUND INFECTION STAPHYLOCOCCAL [None]
